FAERS Safety Report 7957956-X (Version None)
Quarter: 2011Q4

REPORT INFORMATION
  Report Type: 
  Country: None (occurrence: None)
  Receive Date: 20111205
  Receipt Date: 20111127
  Transmission Date: 20120403
  Serious: Yes (Life-Threatening)
  Sender: FDA-Public Use
  Company Number: NL-ALEXION PHARMACEUTICALS INC.-A201101796

PATIENT
  Sex: Female

DRUGS (7)
  1. ARANESP [Concomitant]
     Indication: HAEMOGLOBIN DECREASED
     Dosage: 300 UG, QW
     Route: 058
     Dates: start: 20060223
  2. FUROSEMIDE [Concomitant]
     Indication: OEDEMA
     Dosage: 20 MG, QD (IF REQUIRED)
     Route: 048
     Dates: start: 20110804
  3. DIPYRIDAMOLE [Concomitant]
     Indication: TRANSIENT ISCHAEMIC ATTACK
     Dosage: 200 MG, UNK
     Route: 048
     Dates: start: 20111110, end: 20111117
  4. VITAMIN B-12 [Concomitant]
     Indication: VITAMIN SUPPLEMENTATION
     Dosage: 1 X 2 (MND)
     Route: 058
  5. ACETYLSALICYLIC ACID SRT [Concomitant]
     Indication: TRANSIENT ISCHAEMIC ATTACK
     Dosage: 240 MG, UNK
     Route: 048
     Dates: start: 20111110, end: 20111124
  6. SOLIRIS [Suspect]
     Indication: PAROXYSMAL NOCTURNAL HAEMOGLOBINURIA
     Dosage: UNK
     Dates: start: 20050324
  7. FOLIC ACID [Concomitant]
     Indication: VITAMIN SUPPLEMENTATION
     Dosage: 5 MG, UNK
     Route: 048

REACTIONS (1)
  - TRANSIENT ISCHAEMIC ATTACK [None]
